FAERS Safety Report 21475925 (Version 5)
Quarter: 2025Q1

REPORT INFORMATION
  Report Type: Report from Study
  Country: US (occurrence: US)
  Receive Date: 20221019
  Receipt Date: 20250219
  Transmission Date: 20250408
  Serious: Yes (Hospitalization, Other)
  Sender: BOEHRINGER INGELHEIM
  Company Number: US-BoehringerIngelheim-2022-BI-177387

PATIENT
  Age: 78 Year
  Sex: Female

DRUGS (3)
  1. OFEV [Suspect]
     Active Substance: NINTEDANIB
     Indication: Idiopathic pulmonary fibrosis
     Dates: start: 20220614, end: 20230927
  2. OFEV [Suspect]
     Active Substance: NINTEDANIB
  3. AMLODIPINE [Concomitant]
     Active Substance: AMLODIPINE BESYLATE
     Indication: Product used for unknown indication

REACTIONS (44)
  - Colitis ischaemic [Unknown]
  - Idiopathic pulmonary fibrosis [Unknown]
  - Pruritus [Not Recovered/Not Resolved]
  - Erythema [Unknown]
  - Alopecia [Not Recovered/Not Resolved]
  - Dyspnoea [Recovered/Resolved]
  - Headache [Unknown]
  - Diarrhoea [Unknown]
  - Fall [Unknown]
  - Oropharyngeal pain [Unknown]
  - Cough [Unknown]
  - Nasal pruritus [Unknown]
  - Nasal dryness [Unknown]
  - Illness [Unknown]
  - Pneumonitis [Unknown]
  - Diarrhoea [Unknown]
  - Drug intolerance [Unknown]
  - Vomiting [Unknown]
  - Hiccups [Unknown]
  - Eructation [Unknown]
  - Gastrooesophageal reflux disease [Unknown]
  - Dyspnoea exertional [Not Recovered/Not Resolved]
  - Irritable bowel syndrome [Unknown]
  - Fatigue [Unknown]
  - Asthenia [Not Recovered/Not Resolved]
  - Cellulitis [Unknown]
  - Abdominal discomfort [Recovered/Resolved]
  - Nausea [Not Recovered/Not Resolved]
  - Feeding disorder [Unknown]
  - Diarrhoea [Recovered/Resolved]
  - Gastrointestinal pain [Unknown]
  - Decreased appetite [Unknown]
  - Abdominal pain upper [Not Recovered/Not Resolved]
  - Fatigue [Not Recovered/Not Resolved]
  - Post-traumatic neck syndrome [Unknown]
  - Musculoskeletal stiffness [Unknown]
  - Sleep disorder [Unknown]
  - Chest pain [Unknown]
  - Arthropod bite [Unknown]
  - Malaise [Unknown]
  - Decreased appetite [Unknown]
  - Gastrointestinal disorder [Unknown]
  - Dyspnoea [Not Recovered/Not Resolved]
  - Abdominal tenderness [Unknown]

NARRATIVE: CASE EVENT DATE: 20220601
